FAERS Safety Report 6639856-0 (Version None)
Quarter: 2010Q1

REPORT INFORMATION
  Report Type: 
  Country: None (occurrence: None)
  Receive Date: 20100316
  Receipt Date: 20100301
  Transmission Date: 20100710
  Serious: Yes (Other)
  Sender: FDA-Public Use
  Company Number: 2010AL001347

PATIENT
  Age: 49 Year
  Sex: Female

DRUGS (2)
  1. FLUOXETINE [Suspect]
     Indication: DEPRESSION
     Dosage: ORAL SOLUTION USP, 20MG/5ML
     Route: 048
  2. TRIMETHOPRIM [Concomitant]

REACTIONS (5)
  - CYSTITIS [None]
  - DYSPHONIA [None]
  - INSOMNIA [None]
  - UPPER RESPIRATORY TRACT INFECTION [None]
  - URINARY TRACT INFECTION [None]
